FAERS Safety Report 18578640 (Version 4)
Quarter: 2021Q1

REPORT INFORMATION
  Report Type: Spontaneous
  Country: US (occurrence: US)
  Receive Date: 20201204
  Receipt Date: 20210202
  Transmission Date: 20210419
  Serious: Yes (Hospitalization, Other)
  Sender: FDA-Public Use
  Company Number: US-EUSA PHARMA (UK) LIMITED-2020US000273

PATIENT

DRUGS (20)
  1. SYLVANT [Suspect]
     Active Substance: SILTUXIMAB
     Indication: CASTLEMAN^S DISEASE
     Dosage: 100 MILLIGRAM
     Route: 042
     Dates: start: 20201201, end: 20201201
  2. SYLVANT [Suspect]
     Active Substance: SILTUXIMAB
     Indication: CASTLEMAN^S DISEASE
     Dosage: 1 DOSE ONCE A WEEK FOR 4 WEEKS
     Route: 042
  3. SYLVANT [Suspect]
     Active Substance: SILTUXIMAB
     Dosage: 800 MG
     Route: 042
     Dates: start: 20201201, end: 20201201
  4. SYLVANT [Suspect]
     Active Substance: SILTUXIMAB
     Dosage: 800 MG
     Route: 042
     Dates: start: 20201209, end: 20201209
  5. DEXTROSE IN WATER [Concomitant]
     Active Substance: DEXTROSE\WATER
     Dosage: 250 MILLIGRAM, PRN
     Route: 042
     Dates: start: 20201209, end: 20201210
  6. ACETAMINOPHEN. [Concomitant]
     Active Substance: ACETAMINOPHEN
     Dosage: 325 MILLIGRAM, BID
     Dates: start: 20201209, end: 20201209
  7. METOPROLOL TARTRATE. [Concomitant]
     Active Substance: METOPROLOL TARTRATE
     Indication: PRODUCT USED FOR UNKNOWN INDICATION
     Dosage: 12.5 MILLIGRAM, BID (3 REFILLS)
     Route: 048
     Dates: start: 20201209
  8. PANTOPRAZOLE [Concomitant]
     Active Substance: PANTOPRAZOLE
     Indication: PRODUCT USED FOR UNKNOWN INDICATION
     Dosage: 40 MILLIGRAM (DELAYED RELASED TABLET) WITH BREAKFAST
     Route: 048
     Dates: start: 20201209
  9. ONDANSETRON [Concomitant]
     Active Substance: ONDANSETRON
     Indication: PRODUCT USED FOR UNKNOWN INDICATION
     Dosage: 4 MILLIGRAM, Q8H
     Route: 048
     Dates: start: 20201209
  10. SODIUM CHLORIDE 0.9% [Concomitant]
     Active Substance: SODIUM CHLORIDE
     Indication: PRODUCT USED FOR UNKNOWN INDICATION
     Dosage: 500 MILLILITER
     Route: 040
     Dates: start: 20201209, end: 20201209
  11. BACTRIM DS [Concomitant]
     Active Substance: SULFAMETHOXAZOLE\TRIMETHOPRIM
     Indication: PRODUCT USED FOR UNKNOWN INDICATION
     Dosage: 800?160 MILLIGRAM, MWF (MONDAY,WEDNESDAY AND FRIDAY)
     Route: 048
     Dates: start: 20201209
  12. SENNATAB [Concomitant]
     Indication: PRODUCT USED FOR UNKNOWN INDICATION
     Dosage: 8.6 MILLIGRAM, BID
     Route: 048
     Dates: start: 20201209
  13. HYDROCORTISONE. [Concomitant]
     Active Substance: HYDROCORTISONE
     Dosage: 200 MILLIGRAM/4ML
     Route: 042
     Dates: start: 20201209, end: 20201209
  14. SINGULAIR [Concomitant]
     Active Substance: MONTELUKAST SODIUM
     Indication: PREMEDICATION
     Dosage: 10 MG
     Route: 048
     Dates: start: 20201209, end: 20201209
  15. HUMALOG JUNIOR KWIKPEN [Concomitant]
     Active Substance: INSULIN LISPRO
     Indication: PRODUCT USED FOR UNKNOWN INDICATION
     Dosage: 100 U/ML
     Route: 058
     Dates: start: 20201209
  16. ACETAMINOPHEN. [Concomitant]
     Active Substance: ACETAMINOPHEN
     Indication: CASTLEMAN^S DISEASE
     Dosage: 325 MILLIGRAM, BID
     Dates: start: 20201201, end: 20201201
  17. HYDROCORTISONE. [Concomitant]
     Active Substance: HYDROCORTISONE
     Indication: CASTLEMAN^S DISEASE
     Dosage: 200 MILLIGRAM/4ML
     Route: 042
     Dates: start: 20201201, end: 20201201
  18. ACYCLOVIR [ACICLOVIR] [Concomitant]
     Active Substance: ACYCLOVIR
     Indication: PRODUCT USED FOR UNKNOWN INDICATION
     Dosage: 400 MILLIGRAM, BID
     Route: 048
     Dates: start: 20201209
  19. OXYCODONE [Concomitant]
     Active Substance: OXYCODONE
     Indication: PRODUCT USED FOR UNKNOWN INDICATION
     Dosage: 10 MILLIGRAM, Q4H (PRN)
     Route: 048
     Dates: start: 20201209
  20. DEXTROSE IN WATER [Concomitant]
     Active Substance: DEXTROSE\WATER
     Indication: CASTLEMAN^S DISEASE
     Dosage: 250 MILLIGRAM, PRN
     Route: 042
     Dates: start: 20201201, end: 20201201

REACTIONS (8)
  - Tachycardia [Unknown]
  - Hyperhidrosis [Unknown]
  - Vomiting [Unknown]
  - Infusion related reaction [Unknown]
  - Flushing [Unknown]
  - Thrombocytopenia [Unknown]
  - Injection site reaction [Recovered/Resolved]
  - Off label use [Unknown]

NARRATIVE: CASE EVENT DATE: 20201124
